FAERS Safety Report 8087832-6 (Version None)
Quarter: 2012Q1

REPORT INFORMATION
  Report Type: 
  Country: None (occurrence: None)
  Receive Date: 20120128
  Receipt Date: 20110602
  Transmission Date: 20120608
  Serious: No
  Sender: FDA-Public Use
  Company Number: US-ABBOTT-11P-163-0730608-00

PATIENT
  Sex: Female
  Weight: 76.272 kg

DRUGS (8)
  1. HUMIRA [Suspect]
     Dates: start: 20110501
  2. ALIGN PROBIOTIC [Concomitant]
     Indication: PROBIOTIC THERAPY
  3. ESTROGENIC SUBSTANCE [Concomitant]
     Indication: HORMONE REPLACEMENT THERAPY
  4. LEVOTHYROXINE SODIUM [Concomitant]
     Indication: HORMONE REPLACEMENT THERAPY
  5. VENTOLIN [Concomitant]
     Indication: ASTHMA
  6. HUMIRA [Suspect]
     Indication: CROHN'S DISEASE
     Dates: start: 20110401, end: 20110401
  7. HUMIRA [Suspect]
     Dates: start: 20110501, end: 20110501
  8. ZYRTEC [Concomitant]
     Indication: HYPERSENSITIVITY

REACTIONS (5)
  - CROHN'S DISEASE [None]
  - DECREASED APPETITE [None]
  - DIARRHOEA [None]
  - ABDOMINAL PAIN [None]
  - NAUSEA [None]
